FAERS Safety Report 8991246 (Version 1)
Quarter: 2012Q4

REPORT INFORMATION
  Report Type: Report from Study
  Country: CA (occurrence: CA)
  Receive Date: 20121231
  Receipt Date: 20121231
  Transmission Date: 20130627
  Serious: Yes (Other)
  Sender: FDA-Public Use
  Company Number: CA-ROCHE-1171712

PATIENT
  Age: 60 Year
  Sex: Female
  Weight: 78 kg

DRUGS (3)
  1. OMALIZUMAB [Suspect]
     Indication: ASTHMA
     Dosage: 375 mg, Q2W
     Route: 058
     Dates: start: 20070725
  2. OMALIZUMAB [Suspect]
     Dosage: 375 mg, BIW
     Route: 058
     Dates: start: 20100210
  3. SALBUTAMOL [Suspect]
     Indication: PRODUCT USED FOR UNKNOWN INDICATION
     Route: 065

REACTIONS (23)
  - Nasal polyps [Unknown]
  - Bronchitis [Unknown]
  - Hypersensitivity [Unknown]
  - Ear infection [Unknown]
  - Wheezing [Unknown]
  - Productive cough [Unknown]
  - Dyspnoea exertional [Unknown]
  - Body temperature decreased [Unknown]
  - Sinusitis [Unknown]
  - Blood pressure increased [Unknown]
  - Fatigue [Unknown]
  - Poor quality sleep [Unknown]
  - Pyrexia [Unknown]
  - Malaise [Unknown]
  - Nasal congestion [Unknown]
  - Respiratory tract congestion [Unknown]
  - Increased upper airway secretion [Unknown]
  - Dyspnoea [Unknown]
  - Cough [Unknown]
  - Nasopharyngitis [Unknown]
  - Pharyngitis [Unknown]
  - Diarrhoea infectious [Unknown]
  - Bronchospasm [Unknown]
